FAERS Safety Report 25528447 (Version 1)
Quarter: 2025Q3

REPORT INFORMATION
  Report Type: Spontaneous
  Country: GB (occurrence: GB)
  Receive Date: 20250708
  Receipt Date: 20250708
  Transmission Date: 20251020
  Serious: Yes (Life-Threatening, Disabling, Other)
  Sender: SUNOVION
  Company Number: None

PATIENT

DRUGS (1)
  1. ESTRADIOL\NORETHINDRONE ACETATE\RELUGOLIX [Suspect]
     Active Substance: ESTRADIOL\NORETHINDRONE ACETATE\RELUGOLIX
     Indication: Endometriosis
     Dosage: STANDARD ONCE A DAY TABLET CANT RECALL IF 40 OR 50MG
     Route: 048

REACTIONS (8)
  - Deep vein thrombosis [Not Recovered/Not Resolved]
  - Contraindicated product administered [Recovered/Resolved]
  - Pulmonary oedema [Unknown]
  - Feeling abnormal [Unknown]
  - Migraine [Unknown]
  - Depression [Unknown]
  - Depressed mood [Unknown]
  - Uterine haemorrhage [Unknown]
